FAERS Safety Report 6613939-3 (Version None)
Quarter: 2010Q1

REPORT INFORMATION
  Report Type: 
  Country: None (occurrence: None)
  Receive Date: 20100304
  Receipt Date: 20100224
  Transmission Date: 20100710
  Serious: Yes (Other)
  Sender: FDA-Public Use
  Company Number: B0636246A

PATIENT
  Sex: Male

DRUGS (1)
  1. VENTOLIN [Suspect]
     Route: 055
     Dates: start: 20100101, end: 20100201

REACTIONS (4)
  - ASTHMA [None]
  - DYSGEUSIA [None]
  - OROPHARYNGEAL DISCOMFORT [None]
  - PRODUCT QUALITY ISSUE [None]
